FAERS Safety Report 23175700 (Version 1)
Quarter: 2023Q4

REPORT INFORMATION
  Report Type: Spontaneous
  Country: ES (occurrence: ES)
  Receive Date: 20231113
  Receipt Date: 20231113
  Transmission Date: 20240110
  Serious: Yes (Hospitalization, Other)
  Sender: FDA-Public Use
  Company Number: ES-Eisai-EC-2023-151628

PATIENT
  Age: 4 Year
  Sex: Male

DRUGS (3)
  1. VALPROIC ACID [Suspect]
     Active Substance: VALPROIC ACID
     Indication: Partial seizures
     Dosage: UNK
     Route: 065
  2. PERAMPANEL [Suspect]
     Active Substance: PERAMPANEL
     Indication: Partial seizures
     Dosage: DOSE AND FREQUENCY UNKNOWN.
     Route: 048
  3. PERAMPANEL [Suspect]
     Active Substance: PERAMPANEL
     Dosage: DOSE REDUCED DOWN TO HALF OF THE PREVIOUS DOSE (DOSE AND FREQUENCY UNKNOWN).
     Route: 048

REACTIONS (2)
  - Pancreatitis acute [Recovered/Resolved]
  - Staphylococcal infection [Unknown]
